FAERS Safety Report 11267839 (Version 1)
Quarter: 2015Q3

REPORT INFORMATION
  Report Type: Spontaneous
  Country: US (occurrence: US)
  Receive Date: 20150713
  Receipt Date: 20150713
  Transmission Date: 20151125
  Serious: Yes (Hospitalization, Other)
  Sender: FDA-Public Use
  Company Number: US-MPIJNJ-2013MPI001451

PATIENT
  Age: 56 Year

DRUGS (2)
  1. VELCADE [Suspect]
     Active Substance: BORTEZOMIB
     Indication: PLASMA CELL MYELOMA
     Dosage: 2.3 MG, QW
     Route: 058
     Dates: start: 201208, end: 20131227
  2. VELCADE [Suspect]
     Active Substance: BORTEZOMIB
     Dosage: 2.3 MG, UNK
     Dates: start: 20140110

REACTIONS (1)
  - Pancreatitis acute [Recovered/Resolved]

NARRATIVE: CASE EVENT DATE: 201312
